FAERS Safety Report 15373449 (Version 1)
Quarter: 2018Q3

REPORT INFORMATION
  Report Type: Spontaneous
  Country: US (occurrence: US)
  Receive Date: 20180909
  Receipt Date: 20180909
  Transmission Date: 20181010
  Serious: Yes (Hospitalization, Other)
  Sender: FDA-Public Use
  Company Number: None

PATIENT
  Age: 54 Year
  Sex: Female
  Weight: 75 kg

DRUGS (10)
  1. ARIPIPRAZOLE 5MG 1 TABLET BY MOUTH DAILY [Concomitant]
  2. ESCITALOPRAM 10MG, 1 TABLET BY MOUTH DAILY [Concomitant]
  3. LOSARTAN 50MG, 1 TABLET BY MOUTH DAILY [Concomitant]
  4. METOPROLOL TARTRATE 50MG, 1 TABLET BY MOUTH TWICE DAILY [Concomitant]
  5. KRATOM [Suspect]
     Active Substance: MITRAGYNINE\HERBALS
     Indication: PAIN MANAGEMENT
     Dosage: ?          OTHER FREQUENCY:ONCE;?
     Route: 048
  6. MIRTAZAPINE 7.5MG, 1 TABLET BY MOUTH DAILY AT BEDTIME [Concomitant]
  7. ASPIRIN 81MG, 1 TABLET BY MOUTH DAILY [Concomitant]
  8. ATORVASTATIN 40MG, 1 TABLET BY MOUTH DAILY [Concomitant]
  9. METHADONE 30MG [Concomitant]
  10. ATIVAN 0.5MG, 1 TABLET BY MOUTH EVERY 6 HOURS [Concomitant]

REACTIONS (6)
  - Alanine aminotransferase increased [None]
  - Blood alkaline phosphatase increased [None]
  - Blood alcohol abnormal [None]
  - Liver function test increased [None]
  - Aspartate aminotransferase increased [None]
  - Overdose [None]

NARRATIVE: CASE EVENT DATE: 20180827
